FAERS Safety Report 10611101 (Version 1)
Quarter: 2014Q4

REPORT INFORMATION
  Report Type: Other
  Country: GB (occurrence: GB)
  Receive Date: 20141126
  Receipt Date: 20141126
  Transmission Date: 20150529
  Serious: Yes (Other)
  Sender: FDA-Public Use
  Company Number: GB-MYLANLABS-2014M1011161

PATIENT

DRUGS (1)
  1. INDAPAMIDE. [Suspect]
     Active Substance: INDAPAMIDE
     Indication: HYPERTENSION
     Dosage: 2.5 MG, UNK
     Dates: start: 20131101, end: 20140201

REACTIONS (2)
  - Alveolitis [Recovered/Resolved]
  - Dyspnoea [Recovered/Resolved]

NARRATIVE: CASE EVENT DATE: 20131215
